FAERS Safety Report 21079105 (Version 1)
Quarter: 2022Q3

REPORT INFORMATION
  Report Type: Spontaneous
  Country: US (occurrence: US)
  Receive Date: 20220714
  Receipt Date: 20220714
  Transmission Date: 20221027
  Serious: Yes (Other)
  Sender: FDA-Public Use
  Company Number: US-STRIDES ARCOLAB LIMITED-2022SP008821

PATIENT
  Age: 4 Year
  Sex: Male

DRUGS (1)
  1. MEGESTROL ACETATE [Suspect]
     Active Substance: MEGESTROL ACETATE
     Indication: Appetite disorder
     Dosage: UNK; STOPPED THREE WEEKS PRIOR
     Route: 065

REACTIONS (5)
  - Idiopathic intracranial hypertension [Recovered/Resolved]
  - Steroid withdrawal syndrome [Recovered/Resolved]
  - VIth nerve paralysis [Recovered/Resolved]
  - Adrenal insufficiency [Recovered/Resolved]
  - Off label use [Unknown]
